FAERS Safety Report 5001269-5 (Version None)
Quarter: 2006Q2

REPORT INFORMATION
  Report Type: 
  Country: None (occurrence: None)
  Receive Date: 20060512
  Receipt Date: 20060502
  Transmission Date: 20061013
  Serious: Yes (Hospitalization)
  Sender: FDA-Public Use
  Company Number: GB-ABBOTT-06P-167-0332224-00

PATIENT
  Sex: Female

DRUGS (4)
  1. DEPAKOTE [Suspect]
     Indication: BIPOLAR DISORDER
     Route: 048
     Dates: start: 20050101, end: 20060201
  2. DEPAKOTE [Suspect]
     Route: 048
     Dates: start: 20060201
  3. DEPAKOTE [Suspect]
  4. DOSULEPIN [Concomitant]
     Indication: DEPRESSED MOOD
     Route: 048
     Dates: start: 20060314

REACTIONS (1)
  - ABORTION SPONTANEOUS [None]
